FAERS Safety Report 24671697 (Version 1)
Quarter: 2024Q4

REPORT INFORMATION
  Report Type: Spontaneous
  Country: AU (occurrence: AU)
  Receive Date: 20241127
  Receipt Date: 20241127
  Transmission Date: 20250114
  Serious: Yes (Other)
  Sender: MERCK
  Company Number: AU-009507513-2411AUS009217

PATIENT
  Age: 60 Year
  Sex: Female

DRUGS (2)
  1. KEYTRUDA [Suspect]
     Active Substance: PEMBROLIZUMAB
     Dosage: UNK
  2. DENOSUMAB [Concomitant]
     Active Substance: DENOSUMAB
     Dosage: UNK

REACTIONS (10)
  - Polyarthritis [Unknown]
  - Malignant neoplasm progression [Unknown]
  - Polymyalgia rheumatica [Unknown]
  - Postmenopausal haemorrhage [Unknown]
  - Pulmonary embolism [Unknown]
  - Oligoarthritis [Unknown]
  - Arthritis [Unknown]
  - Arthralgia [Unknown]
  - Synovitis [Unknown]
  - Therapy partial responder [Unknown]

NARRATIVE: CASE EVENT DATE: 20240101
